FAERS Safety Report 10094010 (Version 1)
Quarter: 2014Q2

REPORT INFORMATION
  Report Type: Spontaneous
  Country: JP (occurrence: JP)
  Receive Date: 20140422
  Receipt Date: 20140422
  Transmission Date: 20141212
  Serious: Yes (Death, Other)
  Sender: FDA-Public Use
  Company Number: JP-ROCHE-1383359

PATIENT
  Age: 6 Decade
  Sex: Male

DRUGS (1)
  1. AVASTIN [Suspect]
     Indication: COLON CANCER METASTATIC
     Dosage: DOSAGE IS UNCERTAIN.
     Route: 041

REACTIONS (6)
  - Colon cancer metastatic [Fatal]
  - Large intestine perforation [Unknown]
  - Peritonitis [Unknown]
  - Varicose vein [Unknown]
  - Jaundice [Unknown]
  - Ascites [Unknown]
